FAERS Safety Report 15129587 (Version 1)
Quarter: 2018Q3

REPORT INFORMATION
  Report Type: Spontaneous
  Country: US (occurrence: US)
  Receive Date: 20180711
  Receipt Date: 20180711
  Transmission Date: 20181010
  Serious: No
  Sender: FDA-Public Use
  Company Number: US-SA-2018SA161979

PATIENT
  Age: 53 Year

DRUGS (1)
  1. LANTUS SOLOSTAR [Suspect]
     Active Substance: INSULIN GLARGINE
     Dosage: 50 U, BID

REACTIONS (3)
  - Pyrexia [Not Recovered/Not Resolved]
  - Pain [Unknown]
  - Device issue [Unknown]
